FAERS Safety Report 19397092 (Version 16)
Quarter: 2022Q1

REPORT INFORMATION
  Report Type: Spontaneous
  Country: US (occurrence: US)
  Receive Date: 20210610
  Receipt Date: 20220322
  Transmission Date: 20220423
  Serious: Yes (Hospitalization, Other)
  Sender: FDA-Public Use
  Company Number: US-SUN PHARMACEUTICAL INDUSTRIES LTD-2021R1-299844

PATIENT
  Age: 49 Year
  Sex: Female
  Weight: 63.129 kg

DRUGS (9)
  1. EPOPROSTENOL [Suspect]
     Active Substance: EPOPROSTENOL
     Indication: Pulmonary arterial hypertension
     Dosage: 50 NG/KG/MIN CONTINUOUS
     Route: 042
     Dates: start: 20210422
  2. EPOPROSTENOL [Suspect]
     Active Substance: EPOPROSTENOL
     Dosage: 50 NG/KG/MIN CONTINUOUS
     Route: 042
     Dates: start: 20210422
  3. EPOPROSTENOL [Suspect]
     Active Substance: EPOPROSTENOL
     Dosage: 50 NG/KG/MIN CONTINUOUS
     Route: 042
     Dates: start: 20210422
  4. EPOPROSTENOL [Suspect]
     Active Substance: EPOPROSTENOL
     Dosage: 50 NG/KG/MIN CONTINUOUS
     Route: 042
     Dates: start: 20210422
  5. EPOPROSTENOL [Suspect]
     Active Substance: EPOPROSTENOL
     Dosage: 50 NG/KG/MIN CONTINUOUS
     Route: 042
     Dates: start: 20210422
  6. EPOPROSTENOL [Suspect]
     Active Substance: EPOPROSTENOL
     Indication: Pulmonary arterial hypertension
     Dosage: 50 NG/KG/MIN CONTINUOUS
     Route: 042
     Dates: start: 20210422
  7. ADEMPAS [Concomitant]
     Active Substance: RIOCIGUAT
     Indication: Product used for unknown indication
     Route: 065
  8. OPSUMIT [Concomitant]
     Active Substance: MACITENTAN
     Indication: Product used for unknown indication
     Route: 065
  9. ELIQUIS [Concomitant]
     Active Substance: APIXABAN
     Indication: Product used for unknown indication
     Route: 065

REACTIONS (20)
  - Vascular device infection [Unknown]
  - Cellulitis [Unknown]
  - Thrombosis [Unknown]
  - Rectal discharge [Unknown]
  - Fall [Unknown]
  - Lumbar vertebral fracture [Unknown]
  - Concussion [Unknown]
  - Facial bones fracture [Unknown]
  - Blood iron decreased [Unknown]
  - Post-traumatic neck syndrome [Unknown]
  - Arthritis [Unknown]
  - Pain in jaw [Unknown]
  - Flushing [Unknown]
  - Diarrhoea [Unknown]
  - Arthralgia [Unknown]
  - Nasopharyngitis [Unknown]
  - Back injury [Unknown]
  - Back pain [Unknown]
  - Gait disturbance [Unknown]
  - Weight decreased [Unknown]

NARRATIVE: CASE EVENT DATE: 20211201
